FAERS Safety Report 8443710-1 (Version None)
Quarter: 2012Q2

REPORT INFORMATION
  Report Type: 
  Country: None (occurrence: None)
  Receive Date: 20120618
  Receipt Date: 20120606
  Transmission Date: 20120825
  Serious: Yes (Life-Threatening, Other)
  Sender: FDA-Public Use
  Company Number: SA-ELI_LILLY_AND_COMPANY-SA201205009186

PATIENT
  Sex: Male
  Weight: 75 kg

DRUGS (2)
  1. CYMBALTA [Suspect]
     Indication: DEPRESSION
     Dosage: 60 MG, UNKNOWN
  2. ANTIEPILEPTICS [Suspect]

REACTIONS (4)
  - LEFT VENTRICULAR HYPERTROPHY [None]
  - HYPERTENSIVE CRISIS [None]
  - ATRIAL FLUTTER [None]
  - TACHYCARDIA [None]
